FAERS Safety Report 11462960 (Version 1)
Quarter: 2015Q3

REPORT INFORMATION
  Report Type: Spontaneous
  Country: US (occurrence: US)
  Receive Date: 20150831
  Receipt Date: 20150831
  Transmission Date: 20151125
  Serious: Yes (Other)
  Sender: FDA-Public Use
  Company Number: US-ELI_LILLY_AND_COMPANY-US201101004141

PATIENT
  Sex: Male

DRUGS (11)
  1. LANTUS [Concomitant]
     Active Substance: INSULIN GLARGINE
  2. ASPIRIN. [Concomitant]
     Active Substance: ASPIRIN
     Dosage: 81 MG, DAILY (1/D)
  3. TIZANIDINE. [Concomitant]
     Active Substance: TIZANIDINE
     Dosage: 4 MG, 3/D
  4. CYMBALTA [Suspect]
     Active Substance: DULOXETINE HYDROCHLORIDE
     Dosage: 20 MG, 2/D
     Dates: start: 20110107, end: 20110109
  5. LISINOPRIL. [Concomitant]
     Active Substance: LISINOPRIL
     Dosage: 20 MG, DAILY (1/D)
  6. NAPROXEN. [Concomitant]
     Active Substance: NAPROXEN
     Dosage: 500 MG, 2/D
  7. CYMBALTA [Suspect]
     Active Substance: DULOXETINE HYDROCHLORIDE
     Indication: DIABETIC NEUROPATHY
     Dosage: 1 D/F, UNK
     Dates: start: 201008, end: 201009
  8. LYRICA [Concomitant]
     Active Substance: PREGABALIN
     Dosage: 150 MG, 2/D
  9. ACTOS [Concomitant]
     Active Substance: PIOGLITAZONE HYDROCHLORIDE
     Dosage: 30 MG, DAILY (1/D)
  10. METFORMIN [Concomitant]
     Active Substance: METFORMIN HYDROCHLORIDE
     Dosage: 500 MG, 2/D
  11. NORTRIPTYLINE [Concomitant]
     Active Substance: NORTRIPTYLINE
     Dosage: 10 MG, 4/D

REACTIONS (13)
  - Feeding disorder [Recovered/Resolved]
  - Anxiety [Recovered/Resolved]
  - Suicidal ideation [Recovered/Resolved]
  - Feeling abnormal [Recovered/Resolved]
  - Retching [Recovered/Resolved]
  - Homicidal ideation [Recovered/Resolved]
  - Obsessive thoughts [Recovered/Resolved]
  - Chest pain [Recovered/Resolved]
  - Confusional state [Unknown]
  - Vomiting [Recovered/Resolved]
  - Nausea [Recovered/Resolved]
  - Drug ineffective [Recovered/Resolved]
  - Fatigue [Unknown]
